FAERS Safety Report 9149251 (Version 1)
Quarter: 2013Q1

REPORT INFORMATION
  Report Type: Spontaneous
  Country: US (occurrence: US)
  Receive Date: 20130308
  Receipt Date: 20130308
  Transmission Date: 20140127
  Serious: Yes (Other)
  Sender: FDA-Public Use
  Company Number: US-PFIZER INC-2013076662

PATIENT
  Age: 48 Year
  Sex: Female

DRUGS (1)
  1. SOLU-MEDROL [Suspect]
     Dosage: UNK

REACTIONS (4)
  - Suicidal ideation [Unknown]
  - Cushingoid [Unknown]
  - Weight increased [Unknown]
  - Hypersensitivity [Unknown]
